FAERS Safety Report 9276379 (Version 1)
Quarter: 2012Q4

REPORT INFORMATION
  Report Type: Spontaneous
  Country: IS (occurrence: None)
  Receive Date: 20121109
  Receipt Date: 20121109
  Transmission Date: 20130627
  Serious: Yes (Hospitalization, Other)
  Sender: FDA-Public Use
  Company Number: 2012S1000295

PATIENT
  Age: 62 Year
  Sex: Male

DRUGS (2)
  1. CUBICIN (DAPTOMYCIN) [Suspect]
     Indication: ENDOCARDITIS STAPHYLOCOCCAL
     Route: 042
     Dates: start: 20111208, end: 20111223
  2. ANTIBIOTICS [Concomitant]

REACTIONS (3)
  - Acute respiratory distress syndrome [None]
  - Eosinophilia [None]
  - Cardiac disorder [None]
